FAERS Safety Report 18022286 (Version 1)
Quarter: 2020Q3

REPORT INFORMATION
  Report Type: Spontaneous
  Country: US (occurrence: US)
  Receive Date: 20200715
  Receipt Date: 20200715
  Transmission Date: 20201103
  Serious: No
  Sender: FDA-Public Use
  Company Number: US-LUNDBECK-DKLU3018478

PATIENT
  Age: 85 Year
  Sex: Male

DRUGS (8)
  1. NORTHERA [Suspect]
     Active Substance: DROXIDOPA
     Dosage: WEEK 4
     Route: 048
     Dates: start: 20200612, end: 20200629
  2. HYDRALAZINE [Concomitant]
     Active Substance: HYDRALAZINE HYDROCHLORIDE
     Indication: PRODUCT USED FOR UNKNOWN INDICATION
     Route: 065
  3. FLUDROCORT [Concomitant]
     Indication: PRODUCT USED FOR UNKNOWN INDICATION
     Route: 065
  4. NORTHERA [Suspect]
     Active Substance: DROXIDOPA
     Indication: PARKINSON^S DISEASE
     Dosage: WEEK 1
     Route: 048
     Dates: start: 20200612, end: 20200629
  5. NORTHERA [Suspect]
     Active Substance: DROXIDOPA
     Dosage: WEEK 2
     Route: 048
     Dates: start: 20200612, end: 20200629
  6. NORTHERA [Suspect]
     Active Substance: DROXIDOPA
     Dosage: WEEK 5
     Route: 048
     Dates: start: 20200612, end: 20200629
  7. NORTHERA [Suspect]
     Active Substance: DROXIDOPA
     Dosage: WEEK 3
     Route: 048
     Dates: start: 20200612, end: 20200629
  8. NORTHERA [Suspect]
     Active Substance: DROXIDOPA
     Dosage: WEEK 6
     Route: 048
     Dates: start: 20200612, end: 20200629

REACTIONS (1)
  - Adverse drug reaction [Unknown]
